FAERS Safety Report 12856765 (Version 1)
Quarter: 2016Q4

REPORT INFORMATION
  Report Type: Spontaneous
  Country: US (occurrence: US)
  Receive Date: 20161017
  Receipt Date: 20161017
  Transmission Date: 20170207
  Serious: No
  Sender: FDA-Public Use
  Company Number: None

PATIENT
  Age: 59 Year
  Sex: Female
  Weight: 60.75 kg

DRUGS (8)
  1. MULTIVITAMIN [Concomitant]
     Active Substance: VITAMINS
  2. NIACIN. [Concomitant]
     Active Substance: NIACIN
  3. LACTASE ENZYME [Concomitant]
  4. MAGNESIUM [Concomitant]
     Active Substance: MAGNESIUM
  5. VITAMIN D3 [Concomitant]
     Active Substance: CHOLECALCIFEROL
  6. ACTONEL [Suspect]
     Active Substance: RISEDRONATE SODIUM
     Indication: OSTEOPENIA
     Dosage: ?          QUANTITY:1 TABLET(S);OTHER FREQUENCY:1 A MONTH;?
     Route: 048
     Dates: start: 20161015, end: 20161015
  7. CALCIUM [Concomitant]
     Active Substance: CALCIUM
  8. ESTRACE [Concomitant]
     Active Substance: ESTRADIOL

REACTIONS (13)
  - Chills [None]
  - Vomiting [None]
  - Abdominal pain upper [None]
  - Diarrhoea [None]
  - Body temperature increased [None]
  - Pain in extremity [None]
  - Decreased appetite [None]
  - Hypophagia [None]
  - Fluid intake reduced [None]
  - Malaise [None]
  - Insomnia [None]
  - Nausea [None]
  - Dysgeusia [None]

NARRATIVE: CASE EVENT DATE: 20161015
